FAERS Safety Report 14945317 (Version 1)
Quarter: 2018Q2

REPORT INFORMATION
  Report Type: Spontaneous
  Country: US (occurrence: US)
  Receive Date: 20180529
  Receipt Date: 20180529
  Transmission Date: 20180711
  Serious: No
  Sender: FDA-Public Use
  Company Number: US-BIODELIVERY SCIENCES INTERNATIONAL-2017BDSI0265

PATIENT
  Age: 83 Year
  Sex: Female
  Weight: 66.28 kg

DRUGS (3)
  1. BUPRENORPHINE. [Suspect]
     Active Substance: BUPRENORPHINE
     Route: 002
     Dates: start: 20170927, end: 2017
  2. PARACETAMOL/OXYCODONE HYDROCHLORIDE/OXYCODONE TEREPHTHALATE [Concomitant]
     Indication: PRODUCT USED FOR UNKNOWN INDICATION
     Route: 048
  3. BUPRENORPHINE. [Suspect]
     Active Substance: BUPRENORPHINE
     Indication: PAIN
     Route: 002
     Dates: start: 20170830, end: 2017

REACTIONS (9)
  - Swollen tongue [Recovered/Resolved]
  - Lip pain [Unknown]
  - Mouth swelling [Recovered/Resolved]
  - Sleep disorder [Unknown]
  - Drug ineffective [Recovered/Resolved]
  - Discomfort [Unknown]
  - Oral discomfort [Recovered/Resolved]
  - Glossodynia [Not Recovered/Not Resolved]
  - Tongue discomfort [Recovered/Resolved]

NARRATIVE: CASE EVENT DATE: 20170830
